FAERS Safety Report 7597980-2 (Version None)
Quarter: 2011Q3

REPORT INFORMATION
  Report Type: 
  Country: None (occurrence: None)
  Receive Date: 20110708
  Receipt Date: 20110704
  Transmission Date: 20111222
  Serious: Yes (Death, Other)
  Sender: FDA-Public Use
  Company Number: PHHY2011GB59031

PATIENT
  Age: 66 Year
  Sex: Male
  Weight: 81 kg

DRUGS (2)
  1. OXALIPLATIN [Suspect]
     Indication: COLON CANCER STAGE III
     Dosage: 130 MG/M2, UNK
  2. CAPECITABINE [Suspect]
     Indication: COLON CANCER STAGE III
     Dosage: 850 MG/M2, BID
     Route: 048
     Dates: start: 20110519, end: 20110601

REACTIONS (6)
  - THROMBOCYTOPENIA [None]
  - DIHYDROPYRIMIDINE DEHYDROGENASE DEFICIENCY [None]
  - FEBRILE NEUTROPENIA [None]
  - SEPSIS [None]
  - ILEUS [None]
  - DIARRHOEA [None]
